FAERS Safety Report 6357040-5 (Version None)
Quarter: 2009Q3

REPORT INFORMATION
  Report Type: 
  Country: None (occurrence: None)
  Receive Date: 20090915
  Receipt Date: 20090721
  Transmission Date: 20100115
  Serious: No
  Sender: FDA-Public Use
  Company Number: US-ABBOTT-09P-163-0586680-00

PATIENT

DRUGS (2)
  1. DEPAKOTE [Suspect]
     Indication: EPILEPSY
  2. DIVALPROEX SODIUM [Suspect]
     Indication: EPILEPSY

REACTIONS (2)
  - CONVULSION [None]
  - DRUG INEFFECTIVE [None]
